FAERS Safety Report 16237075 (Version 1)
Quarter: 2019Q2

REPORT INFORMATION
  Report Type: Spontaneous
  Country: FR (occurrence: FR)
  Receive Date: 20190425
  Receipt Date: 20190425
  Transmission Date: 20190711
  Serious: Yes (Other)
  Sender: FDA-Public Use
  Company Number: FR-FERRINGPH-2019FE02128

PATIENT

DRUGS (1)
  1. PROPESS [Suspect]
     Active Substance: DINOPROSTONE
     Indication: PRODUCT USED FOR UNKNOWN INDICATION
     Dosage: UNK
     Route: 067

REACTIONS (5)
  - Failure to suspend medication [Unknown]
  - Drug monitoring procedure incorrectly performed [Unknown]
  - Intrapartum haemorrhage [Unknown]
  - Uterine hyperstimulation [Unknown]
  - Labour complication [Unknown]
